FAERS Safety Report 10434869 (Version 1)
Quarter: 2014Q3

REPORT INFORMATION
  Report Type: Spontaneous
  Country: US (occurrence: None)
  Receive Date: 20140815
  Receipt Date: 20140815
  Transmission Date: 20150326
  Serious: No
  Sender: FDA-Public Use
  Company Number: 2014TUS003608

PATIENT
  Age: 57 Year
  Sex: Female

DRUGS (11)
  1. FIORICET (BUTALBITAL, CAFFEINE, PARACETAMOL) [Concomitant]
  2. TORSEMIDE (TORASEMIDE) [Concomitant]
  3. POTASSIUM CHLORIDE (POTASSIUM CHLORIDE) [Concomitant]
     Active Substance: POTASSIUM CHLORIDE
  4. ASPIRIN (ACETYLSALICYLIC ACID) [Concomitant]
     Active Substance: ASPIRIN
  5. LORTAB 10 (HYDROCODONE BITARTRATE, PARACETAMOL) [Concomitant]
  6. RAMIPRIL (RAMIPRIL) [Concomitant]
     Active Substance: RAMIPRIL
  7. BRINTELLIX [Suspect]
     Active Substance: VORTIOXETINE HYDROBROMIDE
     Indication: DEPRESSION
     Dates: start: 20140417
  8. AMBIEN [Concomitant]
     Active Substance: ZOLPIDEM TARTRATE
  9. VITAMIN D3 [Concomitant]
     Active Substance: CHOLECALCIFEROL
  10. GABAPENTIN (GABAPENTIN) [Concomitant]
     Active Substance: GABAPENTIN
  11. VERAPAMIL [Concomitant]
     Active Substance: VERAPAMIL HYDROCHLORIDE

REACTIONS (4)
  - Headache [None]
  - Dehydration [None]
  - Tremor [None]
  - Vomiting [None]
